FAERS Safety Report 7324484-4 (Version None)
Quarter: 2011Q1

REPORT INFORMATION
  Report Type: 
  Country: None (occurrence: None)
  Receive Date: 20110218
  Receipt Date: 20110209
  Transmission Date: 20110831
  Serious: Yes (Disabling)
  Sender: FDA-Public Use
  Company Number: 2011SP006365

PATIENT
  Age: 45 Year
  Sex: Female

DRUGS (1)
  1. SAPHRIS [Suspect]
     Indication: BIPOLAR DISORDER
     Dosage: 10 MG; SL
     Route: 060
     Dates: start: 20110201, end: 20110209

REACTIONS (2)
  - TONGUE BLISTERING [None]
  - SKIN EXFOLIATION [None]
